FAERS Safety Report 8457239-8 (Version None)
Quarter: 2012Q2

REPORT INFORMATION
  Report Type: 
  Country: None (occurrence: None)
  Receive Date: 20120621
  Receipt Date: 20120614
  Transmission Date: 20120825
  Serious: No
  Sender: FDA-Public Use
  Company Number: JP-EISAI INC-E2020-10930-SPO-JP

PATIENT
  Age: 85 Year
  Sex: Female
  Weight: 51 kg

DRUGS (5)
  1. RADICUT [Concomitant]
  2. ALINAMIN [Concomitant]
  3. ARICEPT [Suspect]
     Indication: DEMENTIA
     Route: 048
     Dates: end: 20120530
  4. PRAVASTATIN [Concomitant]
  5. JUVELA NICOTINATE [Concomitant]
     Route: 048

REACTIONS (1)
  - ARRHYTHMIA [None]
